FAERS Safety Report 8537803-8 (Version None)
Quarter: 2012Q3

REPORT INFORMATION
  Report Type: 
  Country: None (occurrence: None)
  Receive Date: 20120725
  Receipt Date: 20120717
  Transmission Date: 20120928
  Serious: No
  Sender: FDA-Public Use
  Company Number: US-B.I. PHARMACEUTICALS,INC./RIDGEFIELD-2012-BP-15919BP

PATIENT
  Sex: Male

DRUGS (1)
  1. TRADJENTA [Suspect]
     Indication: TYPE 2 DIABETES MELLITUS
     Dosage: 5 MG
     Route: 048
     Dates: end: 20120101

REACTIONS (6)
  - HYPERSENSITIVITY [None]
  - URTICARIA [None]
  - ERYTHEMA [None]
  - BLOOD GLUCOSE INCREASED [None]
  - DYSPNOEA [None]
  - WHEEZING [None]
